FAERS Safety Report 5690052-3 (Version None)
Quarter: 2008Q2

REPORT INFORMATION
  Report Type: 
  Country: None (occurrence: None)
  Receive Date: 20080401
  Receipt Date: 20080307
  Transmission Date: 20081010
  Serious: Yes (Death, Other)
  Sender: FDA-Public Use
  Company Number: US-BAYER-200815464GPV

PATIENT

DRUGS (4)
  1. FLUDARABINE [Suspect]
     Indication: HAEMATOLOGICAL MALIGNANCY
     Dosage: TOTAL DAILY DOSE: 160 MG/M2  UNIT DOSE: 160 MG/M2
     Route: 065
  2. MELPHALAN [Suspect]
     Indication: HAEMATOLOGICAL MALIGNANCY
     Dosage: TOTAL DAILY DOSE: 140 MG/M2  UNIT DOSE: 140 MG/M2
     Route: 065
  3. THIOTEPA [Suspect]
     Indication: HAEMATOLOGICAL MALIGNANCY
     Dosage: TOTAL DAILY DOSE: 10 MG/M2  UNIT DOSE: 10 MG/M2
     Route: 065
  4. THYMOGLOBULIN [Suspect]
     Indication: HAEMATOLOGICAL MALIGNANCY
     Dosage: TOTAL DAILY DOSE: 6 MG/KG  UNIT DOSE: 1.5 MG/KG
     Route: 065

REACTIONS (6)
  - ACUTE GRAFT VERSUS HOST DISEASE [None]
  - CHRONIC GRAFT VERSUS HOST DISEASE [None]
  - DRUG TOXICITY [None]
  - INFECTION [None]
  - MULTI-ORGAN FAILURE [None]
  - RESPIRATORY FAILURE [None]
